FAERS Safety Report 20416181 (Version 5)
Quarter: 2022Q1

REPORT INFORMATION
  Report Type: Spontaneous
  Country: US (occurrence: US)
  Receive Date: 20220202
  Receipt Date: 20220331
  Transmission Date: 20220423
  Serious: No
  Sender: FDA-Public Use
  Company Number: US-DECIPHERA PHARMACEUTICALS LLC-2022US000061

PATIENT
  Age: 69 Year
  Sex: Male

DRUGS (1)
  1. QINLOCK [Suspect]
     Active Substance: RIPRETINIB
     Indication: Gastrointestinal stromal tumour
     Dosage: 200 MILLIGRAM, BID
     Route: 048

REACTIONS (5)
  - COVID-19 [Recovered/Resolved]
  - Toxicity to various agents [Recovered/Resolved]
  - Nephropathy [Recovered/Resolved]
  - Hypertension [Recovered/Resolved]
  - Extra dose administered [Unknown]

NARRATIVE: CASE EVENT DATE: 20210601
